FAERS Safety Report 8404847-6 (Version None)
Quarter: 2012Q2

REPORT INFORMATION
  Report Type: 
  Country: None (occurrence: None)
  Receive Date: 20120601
  Receipt Date: 20120521
  Transmission Date: 20120825
  Serious: No
  Sender: FDA-Public Use
  Company Number: US-ASTRAZENECA-2012SE32563

PATIENT
  Age: 67 Year
  Sex: Female
  Weight: 72.6 kg

DRUGS (3)
  1. SYMBICORT [Suspect]
     Indication: CHRONIC OBSTRUCTIVE PULMONARY DISEASE
     Dosage: TWO PUFFS BID OR MORE
     Route: 055
     Dates: start: 20120516
  2. SYMBICORT [Suspect]
     Indication: ASTHMA
     Dosage: TWO PUFFS BID OR MORE
     Route: 055
     Dates: start: 20120516
  3. COMBIVENT [Concomitant]

REACTIONS (4)
  - DIZZINESS [None]
  - DYSPNOEA [None]
  - DIARRHOEA [None]
  - NAUSEA [None]
